FAERS Safety Report 5134361-5 (Version None)
Quarter: 2006Q4

REPORT INFORMATION
  Report Type: 
  Country: None (occurrence: None)
  Receive Date: 20061025
  Receipt Date: 20061017
  Transmission Date: 20070319
  Serious: Yes (Death, Hospitalization)
  Sender: FDA-Public Use
  Company Number: US-JNJFOC-20061004210

PATIENT
  Age: 33 Year
  Sex: Male
  Weight: 142.88 kg

DRUGS (2)
  1. RISPERDAL CONSTA [Suspect]
     Indication: SCHIZOPHRENIA
     Route: 030
  2. KLONOPIN [Suspect]
     Indication: ANXIETY

REACTIONS (3)
  - CARDIAC VALVE DISEASE [None]
  - HAEMORRHAGE [None]
  - HYPERTHERMIA [None]
